FAERS Safety Report 10275935 (Version 2)
Quarter: 2014Q3

REPORT INFORMATION
  Report Type: Spontaneous
  Country: US (occurrence: US)
  Receive Date: 20140703
  Receipt Date: 20140721
  Transmission Date: 20150326
  Serious: Yes (Other)
  Sender: FDA-Public Use
  Company Number: US-PFIZER INC-2014180716

PATIENT
  Sex: Male

DRUGS (1)
  1. SUTENT [Suspect]
     Active Substance: SUNITINIB MALATE
     Dosage: 50 MG, CYCLIC, 1 CAPSULE DAILY FOR 21 DAYS, THEN 14 DAYS OFF
     Route: 048

REACTIONS (2)
  - Blood uric acid increased [Unknown]
  - Blood creatinine increased [Unknown]
